FAERS Safety Report 19208527 (Version 4)
Quarter: 2021Q2

REPORT INFORMATION
  Report Type: Report from Study
  Country: None (occurrence: ES)
  Receive Date: 20210504
  Receipt Date: 20210513
  Transmission Date: 20210717
  Serious: Yes (Hospitalization, Other)
  Sender: FDA-Public Use
  Company Number: ES-ABBVIE-21K-144-3879614-00

PATIENT
  Age: 46 Year
  Sex: Male
  Weight: 60 kg

DRUGS (3)
  1. SINEMET [Suspect]
     Active Substance: CARBIDOPA\LEVODOPA
     Indication: PRODUCT USED FOR UNKNOWN INDICATION
     Route: 065
     Dates: start: 2021
  2. DUODOPA [Suspect]
     Active Substance: CARBIDOPA\LEVODOPA
     Dosage: CD INCREASED BY 0.2 ML/H AND EXTRA DOSE BY 0.3 ML
     Route: 050
     Dates: start: 20210429
  3. DUODOPA [Suspect]
     Active Substance: CARBIDOPA\LEVODOPA
     Indication: PARKINSON^S DISEASE
     Route: 050
     Dates: start: 20210421, end: 20210429

REACTIONS (14)
  - Mental disorder [Unknown]
  - Dyskinesia [Unknown]
  - Therapeutic product effect delayed [Unknown]
  - Freezing phenomenon [Not Recovered/Not Resolved]
  - Symptom recurrence [Unknown]
  - Nuchal rigidity [Not Recovered/Not Resolved]
  - Reduced facial expression [Not Recovered/Not Resolved]
  - Stoma site erythema [Not Recovered/Not Resolved]
  - Intentional product misuse [Unknown]
  - Constipation [Unknown]
  - Choking [Not Recovered/Not Resolved]
  - Musculoskeletal stiffness [Unknown]
  - Stoma site pain [Not Recovered/Not Resolved]
  - Drug ineffective [Unknown]

NARRATIVE: CASE EVENT DATE: 2021
